FAERS Safety Report 20404642 (Version 1)
Quarter: 2022Q1

REPORT INFORMATION
  Report Type: Spontaneous
  Country: US (occurrence: US)
  Receive Date: 20220131
  Receipt Date: 20220131
  Transmission Date: 20220423
  Serious: No
  Sender: FDA-Public Use
  Company Number: US-BEH-2022141383

PATIENT
  Sex: Male

DRUGS (2)
  1. HIZENTRA [Suspect]
     Active Substance: HUMAN IMMUNOGLOBULIN G
     Indication: Hypogammaglobulinaemia
     Dosage: 10 GRAM, QW
     Route: 058
     Dates: start: 20210512
  2. CELEBREX [Concomitant]
     Active Substance: CELECOXIB

REACTIONS (4)
  - Injection site urticaria [Recovered/Resolved]
  - Recalled product administered [Recovered/Resolved]
  - Injection site warmth [Recovered/Resolved]
  - Recalled product administered [Recovered/Resolved]
